FAERS Safety Report 23379865 (Version 2)
Quarter: 2024Q1

REPORT INFORMATION
  Report Type: Spontaneous
  Country: US (occurrence: None)
  Receive Date: 20240108
  Receipt Date: 20240221
  Transmission Date: 20240409
  Serious: No
  Sender: FDA-Public Use
  Company Number: 2024A002626

PATIENT
  Age: 27634 Day

DRUGS (1)
  1. BREZTRI [Suspect]
     Active Substance: BUDESONIDE\FORMOTEROL\GLYCOPYRROLATE
     Route: 055

REACTIONS (9)
  - Oropharyngeal pain [Unknown]
  - Throat irritation [Unknown]
  - Dyspnoea [Unknown]
  - Decreased activity [Unknown]
  - Dysphonia [Unknown]
  - Incorrect dose administered [Unknown]
  - Device use issue [Unknown]
  - Drug dose omission by device [Unknown]
  - Device delivery system issue [Unknown]

NARRATIVE: CASE EVENT DATE: 20231225
